FAERS Safety Report 13792276 (Version 2)
Quarter: 2017Q3

REPORT INFORMATION
  Report Type: Spontaneous
  Country: JP (occurrence: JP)
  Receive Date: 20170726
  Receipt Date: 20170828
  Transmission Date: 20171127
  Serious: Yes (Death, Other)
  Sender: FDA-Public Use
  Company Number: JP-BAYER-2017-141877

PATIENT
  Age: 77 Year
  Sex: Male

DRUGS (1)
  1. STIVARGA [Suspect]
     Active Substance: REGORAFENIB
     Indication: COLORECTAL CANCER
     Dosage: DAILY DOSE 120 MG
     Route: 048

REACTIONS (7)
  - Dysphonia [Unknown]
  - Hypoalbuminaemia [None]
  - Oedema peripheral [None]
  - Decreased appetite [None]
  - Fatigue [None]
  - Death [Fatal]
  - Thrombocytopenia [Unknown]
